FAERS Safety Report 4780977-5 (Version None)
Quarter: 2005Q3

REPORT INFORMATION
  Report Type: 
  Country: None (occurrence: None)
  Receive Date: 20050926
  Receipt Date: 20050912
  Transmission Date: 20060218
  Serious: Yes (Death)
  Sender: FDA-Public Use
  Company Number: A-CH2005-10288

PATIENT
  Age: 58 Year
  Sex: Female

DRUGS (4)
  1. TRACLEER [Suspect]
     Indication: PULMONARY HYPERTENSION
     Dosage: 62.5 MG, BID, ORAL
     Route: 048
     Dates: start: 20040906, end: 20050728
  2. SILDENAFIL CITRATE [Concomitant]
  3. FLOLAN [Concomitant]
  4. NADROPARIN (NADROPARIN) [Concomitant]

REACTIONS (1)
  - INTRA-ABDOMINAL HAEMORRHAGE [None]
